FAERS Safety Report 12272209 (Version 1)
Quarter: 2016Q2

REPORT INFORMATION
  Report Type: Spontaneous
  Country: FR (occurrence: FR)
  Receive Date: 20160415
  Receipt Date: 20160415
  Transmission Date: 20160815
  Serious: Yes (Hospitalization, Other)
  Sender: FDA-Public Use
  Company Number: FR-ELI_LILLY_AND_COMPANY-FR201604000745

PATIENT
  Age: 53 Year
  Sex: Female

DRUGS (13)
  1. ATROVENT [Concomitant]
     Active Substance: IPRATROPIUM BROMIDE
  2. THERALENE [Concomitant]
     Active Substance: TRIMEPRAZINE
     Route: 048
  3. SOLUPRED                           /00016201/ [Suspect]
     Active Substance: PREDNISOLONE
     Indication: DELUSION
     Dosage: 20 MG, QD
     Route: 048
     Dates: start: 20160113
  4. HYDROXYZINE [Concomitant]
     Active Substance: HYDROXYZINE\HYDROXYZINE HYDROCHLORIDE
  5. ZYPREXA [Suspect]
     Active Substance: OLANZAPINE
     Dosage: 10 MG, QD
     Route: 048
     Dates: start: 20160127, end: 20160127
  6. VENTOLINE                          /00139501/ [Concomitant]
     Active Substance: ALBUTEROL
  7. LYRICA [Concomitant]
     Active Substance: PREGABALIN
  8. NICOPATCH [Concomitant]
     Active Substance: NICOTINE
  9. DIFFU-K [Concomitant]
     Active Substance: POTASSIUM CHLORIDE
  10. ZYPREXA [Suspect]
     Active Substance: OLANZAPINE
     Indication: DELUSION
     Dosage: 5 MG, QD
     Route: 048
     Dates: start: 20160122, end: 20160127
  11. INEXIUM                            /01479302/ [Concomitant]
     Active Substance: ESOMEPRAZOLE MAGNESIUM
  12. PARACETAMOL [Concomitant]
     Active Substance: ACETAMINOPHEN
  13. LOVENOX [Concomitant]
     Active Substance: ENOXAPARIN SODIUM

REACTIONS (3)
  - Polydipsia [Unknown]
  - Hyponatraemia [Recovered/Resolved]
  - Adrenal insufficiency [Unknown]

NARRATIVE: CASE EVENT DATE: 20160128
